FAERS Safety Report 8410083-X (Version None)
Quarter: 2012Q2

REPORT INFORMATION
  Report Type: 
  Country: None (occurrence: None)
  Receive Date: 20120605
  Receipt Date: 20120601
  Transmission Date: 20120825
  Serious: Yes (Hospitalization)
  Sender: FDA-Public Use
  Company Number: EC-BAYER-2012-054546

PATIENT
  Age: 27 Year
  Sex: Female
  Weight: 54.875 kg

DRUGS (1)
  1. YAZ [Suspect]
     Indication: CONTRACEPTION
     Dosage: UNK
     Route: 048
     Dates: start: 20100101, end: 20120501

REACTIONS (2)
  - ECTOPIC PREGNANCY [None]
  - ABDOMINAL PAIN UPPER [None]
